FAERS Safety Report 7374635-0 (Version None)
Quarter: 2011Q1

REPORT INFORMATION
  Report Type: 
  Country: None (occurrence: None)
  Receive Date: 20110325
  Receipt Date: 20100524
  Transmission Date: 20110831
  Serious: Yes (Other)
  Sender: FDA-Public Use
  Company Number: US-MYLANLABS-2010S1009476

PATIENT
  Sex: Female

DRUGS (1)
  1. FENTANYL-100 [Suspect]
     Indication: BACK PAIN
     Dosage: Q 48 HOURS
     Route: 062
     Dates: start: 20080101

REACTIONS (4)
  - NAUSEA [None]
  - DRUG EFFECT INCREASED [None]
  - PRESYNCOPE [None]
  - DIZZINESS [None]
